FAERS Safety Report 6370309-3 (Version None)
Quarter: 2009Q3

REPORT INFORMATION
  Report Type: 
  Country: None (occurrence: None)
  Receive Date: 20090921
  Receipt Date: 20090921
  Transmission Date: 20100115
  Serious: Yes (Life-Threatening, Disabling, Other)
  Sender: FDA-Public Use
  Company Number: None

PATIENT
  Sex: Female
  Weight: 95.2554 kg

DRUGS (1)
  1. FLECTOR [Suspect]
     Indication: BACK PAIN
     Dosage: ONE PATCH QD TOPICALLY
     Route: 061
     Dates: start: 20090401, end: 20090406

REACTIONS (2)
  - MOVEMENT DISORDER [None]
  - MYALGIA [None]
